FAERS Safety Report 15178729 (Version 10)
Quarter: 2022Q1

REPORT INFORMATION
  Report Type: Spontaneous
  Country: GB (occurrence: GB)
  Receive Date: 20180722
  Receipt Date: 20220228
  Transmission Date: 20220423
  Serious: Yes (Hospitalization, Other)
  Sender: FDA-Public Use
  Company Number: PHHY2015GB178050

PATIENT
  Age: 43 Year
  Sex: Female

DRUGS (51)
  1. DOCETAXEL [Suspect]
     Active Substance: DOCETAXEL
     Indication: Breast cancer metastatic
     Dosage: 130 MG, Q3W
     Route: 042
     Dates: start: 20150616, end: 20150616
  2. DOCETAXEL [Suspect]
     Active Substance: DOCETAXEL
     Dosage: 130 MG, Q3W
     Route: 042
     Dates: start: 20150616, end: 20150709
  3. DOCETAXEL [Suspect]
     Active Substance: DOCETAXEL
     Dosage: 130 MG, Q3W
     Route: 042
     Dates: start: 20150709, end: 20150709
  4. DOCETAXEL [Suspect]
     Active Substance: DOCETAXEL
     Dosage: 260 MG, CUMULATIVE DOSE
     Route: 042
  5. DOCETAXEL [Suspect]
     Active Substance: DOCETAXEL
     Dosage: 260 MG, Q3W
     Route: 042
  6. DOCETAXEL [Suspect]
     Active Substance: DOCETAXEL
     Dosage: 260 MG, Q3W
     Route: 042
  7. PACLITAXEL [Suspect]
     Active Substance: PACLITAXEL
     Indication: Product used for unknown indication
     Dosage: 420 MG (340 MG, Q3W)
     Route: 042
     Dates: start: 20150609, end: 20150609
  8. PACLITAXEL [Suspect]
     Active Substance: PACLITAXEL
     Dosage: 567 MG, Q3W (TOTAL)
     Route: 042
     Dates: start: 20150616, end: 20150616
  9. PACLITAXEL [Suspect]
     Active Substance: PACLITAXEL
     Dosage: 450 MG, Q3W (LOADING DOSE)
     Route: 042
     Dates: start: 20150730, end: 20150730
  10. PACLITAXEL [Suspect]
     Active Substance: PACLITAXEL
     Dosage: 450 MG, BIW (LOADING DOSE)
     Route: 042
     Dates: start: 20150730, end: 20150730
  11. PACLITAXEL [Suspect]
     Active Substance: PACLITAXEL
     Dosage: 450 MG, Q3W (LOADING DOSE)
     Route: 042
     Dates: start: 20150730, end: 20150820
  12. PACLITAXEL [Suspect]
     Active Substance: PACLITAXEL
     Dosage: 450 MG, Q3W
     Route: 042
     Dates: start: 20150820, end: 20150820
  13. PACLITAXEL [Suspect]
     Active Substance: PACLITAXEL
     Dosage: 450 MG
     Route: 042
     Dates: start: 20150730
  14. PACLITAXEL [Suspect]
     Active Substance: PACLITAXEL
     Dosage: 340 MG, Q3W
     Route: 042
     Dates: start: 20150730, end: 20150730
  15. PACLITAXEL [Suspect]
     Active Substance: PACLITAXEL
     Dosage: 450 MG, BIW (450 MG, Q3W)
     Route: 042
     Dates: start: 20150820, end: 20150820
  16. PACLITAXEL [Suspect]
     Active Substance: PACLITAXEL
     Dosage: 340 MG, Q3W (LOADING DOSE)
     Route: 042
     Dates: start: 20150820, end: 20150820
  17. PACLITAXEL [Suspect]
     Active Substance: PACLITAXEL
     Dosage: 340 MG, Q3W
     Route: 042
     Dates: start: 20150910, end: 20150910
  18. PACLITAXEL [Suspect]
     Active Substance: PACLITAXEL
     Dosage: 340 MG, Q3W
     Route: 042
     Dates: start: 20151022, end: 20151022
  19. PACLITAXEL [Suspect]
     Active Substance: PACLITAXEL
     Dosage: LOADING DOSE450 MG FROM 30-JUL-2015 TO 20-AUG-2015CUMULATIVE:857.1429 MG
     Route: 042
     Dates: start: 20150910, end: 20151022
  20. PACLITAXEL [Suspect]
     Active Substance: PACLITAXEL
     Dosage: 320 MG, Q3W, (340 MG,Q3W)
     Route: 042
     Dates: start: 20150709, end: 20150709
  21. PACLITAXEL [Suspect]
     Active Substance: PACLITAXEL
     Dosage: 1350 MG, Q3W, (1350 MG, Q3W, 450 MG, QW3 (LOADING DOSE)
     Route: 042
     Dates: start: 20150730, end: 20150730
  22. PACLITAXEL [Suspect]
     Active Substance: PACLITAXEL
     Dosage: 420 MG, Q3W
     Route: 042
     Dates: start: 20150709, end: 20150709
  23. PACLITAXEL [Suspect]
     Active Substance: PACLITAXEL
     Dosage: 340 MG, Q3W
     Route: 042
     Dates: start: 20150910
  24. TRASTUZUMAB [Suspect]
     Active Substance: TRASTUZUMAB
     Indication: Breast cancer metastatic
     Dosage: 567 MG (LOADING DOSE) (TOTAL)
     Route: 041
     Dates: start: 20150616, end: 20150616
  25. TRASTUZUMAB [Suspect]
     Active Substance: TRASTUZUMAB
     Dosage: 567 MG (LOADING DOSE) (TOTAL)
     Route: 041
     Dates: start: 20150616, end: 20150616
  26. TRASTUZUMAB [Suspect]
     Active Substance: TRASTUZUMAB
     Dosage: 420 MG, Q3W (MAINTENANCE DOSE)
     Route: 042
     Dates: start: 20150709, end: 20150709
  27. TRASTUZUMAB [Suspect]
     Active Substance: TRASTUZUMAB
     Dosage: 420 MG, Q3W (MAINTENANCE DOSE)
     Route: 042
     Dates: start: 20150709, end: 20150709
  28. TRASTUZUMAB [Suspect]
     Active Substance: TRASTUZUMAB
     Dosage: 420 MG, Q3W (MAINTENANCE DOSE)
     Route: 042
     Dates: start: 20150709
  29. TRASTUZUMAB [Suspect]
     Active Substance: TRASTUZUMAB
     Dosage: 987 MG, CUMULATIVE DOSE
     Route: 065
  30. HERCEPTIN [Suspect]
     Active Substance: TRASTUZUMAB
     Indication: Breast cancer metastatic
     Dosage: LOADING DOSE. RECEIVED MAINTAINANCE DOSE 420 MG ON 09-JUL-2015
     Route: 042
     Dates: start: 20150616, end: 20150616
  31. HERCEPTIN [Suspect]
     Active Substance: TRASTUZUMAB
     Dosage: 420 MG, Q3W
     Route: 042
     Dates: start: 20150709, end: 20150709
  32. HERCEPTIN [Suspect]
     Active Substance: TRASTUZUMAB
     Dosage: 420 MG, BIW (420 MG, Q3W)
     Route: 042
     Dates: start: 20150709, end: 20150709
  33. HERCEPTIN [Suspect]
     Active Substance: TRASTUZUMAB
     Dosage: 420 MG, Q3W (MAINTAINANCE DOSE)
     Route: 042
     Dates: start: 20150709
  34. PERTUZUMAB [Suspect]
     Active Substance: PERTUZUMAB
     Indication: Breast cancer metastatic
     Dosage: 840 MG, QD, LOADING DOSE
     Route: 042
     Dates: start: 20150615, end: 20150615
  35. PERTUZUMAB [Suspect]
     Active Substance: PERTUZUMAB
     Dosage: 840 MG, Q3W (MAINTAINENCE DOSE)
     Route: 042
     Dates: start: 20150615, end: 20150615
  36. PERTUZUMAB [Suspect]
     Active Substance: PERTUZUMAB
     Dosage: 567 MG, Q3W (LOADING DOSE) (TOTAL)
     Route: 041
     Dates: start: 20150616
  37. PERTUZUMAB [Suspect]
     Active Substance: PERTUZUMAB
     Dosage: 420 MG, Q3W, (MAINTAINACE DOSE)
     Route: 042
     Dates: start: 20150709
  38. BENZYDAMINE [Suspect]
     Active Substance: BENZYDAMINE
     Indication: Mucosal inflammation
     Dosage: UNK (LIQUID MOUTHWASH 15 ML/CM3)
     Route: 048
  39. LOPERAMIDE [Suspect]
     Active Substance: LOPERAMIDE
     Indication: Diarrhoea
     Dosage: 2 MG, PRN
     Route: 048
  40. LOPERAMIDE [Suspect]
     Active Substance: LOPERAMIDE
     Dosage: AS NEEDED
     Route: 048
  41. TRAMADOL [Concomitant]
     Active Substance: TRAMADOL
     Indication: Pain
     Dosage: 100 MG, QD
     Route: 048
  42. TRAMADOL [Concomitant]
     Active Substance: TRAMADOL
     Dosage: 50 MG,QD
     Route: 048
  43. DOMPERIDONE [Concomitant]
     Active Substance: DOMPERIDONE
     Indication: Product used for unknown indication
     Dosage: 10 MG,QD
     Route: 048
     Dates: start: 20150709
  44. DOMPERIDONE [Concomitant]
     Active Substance: DOMPERIDONE
     Dosage: 30 MG, QD
     Route: 048
     Dates: start: 20180709
  45. METFORMIN [Concomitant]
     Active Substance: METFORMIN HYDROCHLORIDE
     Indication: Diabetes mellitus
     Dosage: 2 G, QD
     Route: 048
  46. METFORMIN [Concomitant]
     Active Substance: METFORMIN HYDROCHLORIDE
     Dosage: 1 G,QD
     Route: 048
  47. CHLORPHENIRAMINE MALEATE [Concomitant]
     Active Substance: CHLORPHENIRAMINE MALEATE
     Indication: Product used for unknown indication
     Dosage: 10 MG
     Route: 042
     Dates: start: 20150709, end: 20150709
  48. HYDROCORTISONE [Concomitant]
     Active Substance: HYDROCORTISONE
     Indication: Product used for unknown indication
     Dosage: 100 MG
     Route: 042
     Dates: start: 20150709, end: 20150709
  49. COCODAMOL [Concomitant]
     Active Substance: ACETAMINOPHEN\CODEINE PHOSPHATE
     Indication: Product used for unknown indication
     Dosage: 2000 MG, QD
     Route: 048
  50. COCODAMOL [Concomitant]
     Active Substance: ACETAMINOPHEN\CODEINE PHOSPHATE
     Dosage: 500 MG,QD
     Route: 048
  51. AMOXICILLIN\CLAVULANATE POTASSIUM [Concomitant]
     Active Substance: AMOXICILLIN\CLAVULANATE POTASSIUM
     Indication: Cough
     Dosage: COUGH WITH YELLOW SPUTUM
     Route: 048
     Dates: start: 20180110, end: 20180117

REACTIONS (9)
  - Febrile neutropenia [Recovered/Resolved]
  - Swelling [Not Recovered/Not Resolved]
  - Chest pain [Not Recovered/Not Resolved]
  - Mucosal inflammation [Recovered/Resolved]
  - Neuropathy peripheral [Not Recovered/Not Resolved]
  - Fatigue [Recovered/Resolved]
  - Diarrhoea [Recovered/Resolved]
  - Vomiting [Not Recovered/Not Resolved]
  - Nausea [Not Recovered/Not Resolved]

NARRATIVE: CASE EVENT DATE: 20150908
